FAERS Safety Report 18263143 (Version 1)
Quarter: 2020Q3

REPORT INFORMATION
  Report Type: Spontaneous
  Country: US (occurrence: US)
  Receive Date: 20200914
  Receipt Date: 20200914
  Transmission Date: 20201103
  Serious: Yes (Hospitalization)
  Sender: FDA-Public Use
  Company Number: US-CADILA HEALTHCARE LIMITED-US-ZYDUS-055459

PATIENT

DRUGS (5)
  1. MORPHINE [Suspect]
     Active Substance: MORPHINE
     Dosage: 4 MILLIGRAM (20 MIN AFTER PRESENTATION)
     Route: 065
  2. MORPHINE [Suspect]
     Active Substance: MORPHINE
     Indication: MUSCULOSKELETAL PAIN
     Dosage: 5 MILLIGRAM (FOLLOWED IN 5 MIN BY AN ADDITIONAL 5 MG)
     Route: 042
  3. AMITRIPTYLINE [Concomitant]
     Active Substance: AMITRIPTYLINE
     Indication: PRODUCT USED FOR UNKNOWN INDICATION
     Dosage: 10 MILLIGRAM, QD
  4. ONDANSETRON [Concomitant]
     Active Substance: ONDANSETRON
     Indication: MUSCULOSKELETAL PAIN
     Dosage: 4 MILLIGRAM (ONE HOUR LATER)
  5. KETAMINE [Suspect]
     Active Substance: KETAMINE
     Indication: MUSCULOSKELETAL PAIN
     Dosage: 16 MILLIGRAM
     Route: 042

REACTIONS (4)
  - Neuropsychiatric syndrome [Recovered/Resolved]
  - Slow speech [Recovered/Resolved]
  - Confusional state [Recovered/Resolved]
  - Amnesia [Recovered/Resolved]
